FAERS Safety Report 4276717-9 (Version None)
Quarter: 2004Q1

REPORT INFORMATION
  Report Type: 
  Country: None (occurrence: None)
  Receive Date: 20040121
  Receipt Date: 20040121
  Transmission Date: 20041129
  Serious: No
  Sender: FDA-Public Use
  Company Number: None

PATIENT
  Age: 48 Year
  Sex: Female
  Weight: 124.7392 kg

DRUGS (6)
  1. ZETIA [Suspect]
     Indication: HYPERLIPIDAEMIA
     Dosage: 10 MG QD ORAL
     Route: 048
     Dates: start: 20031215, end: 20031215
  2. ATENOLOL [Concomitant]
  3. LEVOTHROID [Concomitant]
  4. PROTONIX [Concomitant]
  5. PRINIVIL [Concomitant]
  6. PROZAC [Concomitant]

REACTIONS (1)
  - OROPHARYNGEAL SWELLING [None]
